FAERS Safety Report 9190986 (Version 1)
Quarter: 2013Q1

REPORT INFORMATION
  Report Type: Report from Study
  Country: US (occurrence: US)
  Receive Date: 20130326
  Receipt Date: 20130326
  Transmission Date: 20140127
  Serious: Yes (Hospitalization)
  Sender: FDA-Public Use
  Company Number: US-JNJFOC-20130312250

PATIENT
  Age: 19 Year
  Sex: Male
  Weight: 61.3 kg

DRUGS (3)
  1. REMICADE [Suspect]
     Indication: CROHN^S DISEASE
     Route: 042
     Dates: start: 20070323, end: 20081030
  2. HUMIRA [Suspect]
     Indication: CROHN^S DISEASE
     Dosage: THERAPY STOP DATE: ^301-JAN-2013^
     Route: 065
     Dates: start: 20081214, end: 201301
  3. CIMZIA [Suspect]
     Indication: CROHN^S DISEASE
     Route: 065

REACTIONS (1)
  - Crohn^s disease [Not Recovered/Not Resolved]
